FAERS Safety Report 21536215 (Version 1)
Quarter: 2022Q4

REPORT INFORMATION
  Report Type: Spontaneous
  Country: TH (occurrence: TH)
  Receive Date: 20221101
  Receipt Date: 20221101
  Transmission Date: 20230113
  Serious: Yes (Other)
  Sender: FDA-Public Use
  Company Number: TH-PFIZER INC-PV202200090261

PATIENT
  Age: 62 Year
  Sex: Female
  Weight: 53.9 kg

DRUGS (1)
  1. VYNDAMAX [Suspect]
     Active Substance: TAFAMIDIS
     Indication: Cardiac amyloidosis
     Dosage: CAP 61 MG 1 CAPSULE ORAL EVERY OTHER DAY
     Route: 048
     Dates: start: 20220822

REACTIONS (3)
  - Troponin T increased [Unknown]
  - N-terminal prohormone brain natriuretic peptide increased [Unknown]
  - Off label use [Unknown]

NARRATIVE: CASE EVENT DATE: 20220822
